FAERS Safety Report 7011979-6 (Version None)
Quarter: 2010Q3

REPORT INFORMATION
  Report Type: 
  Country: None (occurrence: None)
  Receive Date: 20100924
  Receipt Date: 20100921
  Transmission Date: 20110219
  Serious: Yes (Other)
  Sender: FDA-Public Use
  Company Number: US-ASTRAZENECA-2010SE34958

PATIENT
  Sex: Male

DRUGS (1)
  1. SEROQUEL [Suspect]
     Route: 048
     Dates: start: 20070101, end: 20080701

REACTIONS (6)
  - ANXIETY [None]
  - DIABETES MELLITUS [None]
  - NERVE INJURY [None]
  - PAIN [None]
  - SHOCK [None]
  - WEIGHT INCREASED [None]
